FAERS Safety Report 9774777 (Version 1)
Quarter: 2013Q4

REPORT INFORMATION
  Report Type: Spontaneous
  Country: US (occurrence: US)
  Receive Date: 20131220
  Receipt Date: 20131220
  Transmission Date: 20140711
  Serious: Yes (Other)
  Sender: FDA-Public Use
  Company Number: US-BAYER-2013-152740

PATIENT
  Age: 51 Year
  Sex: Male

DRUGS (3)
  1. SORAFENIB (RAF KINASE INHIBITOR) [Suspect]
     Indication: CHOLANGIOCARCINOMA
     Dosage: 400 MG, BID
     Dates: start: 200905
  2. SORAFENIB (RAF KINASE INHIBITOR) [Suspect]
     Indication: CHOLANGIOCARCINOMA
     Dosage: RESUMED ON 200 MG, BID, CESSATION OF THE DRUG WAS FOR A PERIOD OF 7 DAYS DUE TO THROMBOCYTOPENIA
  3. SORAFENIB (RAF KINASE INHIBITOR) [Suspect]
     Indication: CHOLANGIOCARCINOMA
     Dosage: 200 MG, BID
     Dates: start: 201106

REACTIONS (6)
  - Thrombocytopenia [Recovered/Resolved]
  - Off label use [None]
  - Epistaxis [Recovered/Resolved]
  - Diarrhoea [Recovered/Resolved]
  - Exfoliative rash [Recovering/Resolving]
  - Palmar-plantar erythrodysaesthesia syndrome [Recovering/Resolving]
